FAERS Safety Report 25626949 (Version 1)
Quarter: 2025Q3

REPORT INFORMATION
  Report Type: Spontaneous
  Country: CN (occurrence: CN)
  Receive Date: 20250731
  Receipt Date: 20250731
  Transmission Date: 20251020
  Serious: Yes (Hospitalization, Other)
  Sender: Kenvue
  Company Number: CN-KENVUE-20250708132

PATIENT

DRUGS (9)
  1. ACETAMINOPHEN [Suspect]
     Active Substance: ACETAMINOPHEN
     Indication: Migraine
     Route: 065
  2. IBUPROFEN [Suspect]
     Active Substance: IBUPROFEN
     Indication: Migraine
     Route: 065
  3. CAFFEINE [Suspect]
     Active Substance: CAFFEINE
     Indication: Migraine
     Route: 065
  4. AMINOPYRINE [Suspect]
     Active Substance: AMINOPYRINE
     Indication: Migraine
     Route: 065
  5. PHENACETIN [Suspect]
     Active Substance: PHENACETIN
     Indication: Migraine
     Route: 065
  6. PHENOBARBITAL [Suspect]
     Active Substance: PHENOBARBITAL
     Indication: Migraine
     Route: 065
  7. CHLORPHENIRAMINE MALEATE [Suspect]
     Active Substance: CHLORPHENIRAMINE MALEATE
     Indication: Migraine
     Route: 065
  8. TOPIRAMATE [Suspect]
     Active Substance: TOPIRAMATE
     Indication: Migraine
     Route: 065
  9. VALPROATE [Suspect]
     Active Substance: VALPROIC ACID
     Indication: Migraine
     Route: 065

REACTIONS (5)
  - Hypokalaemia [Unknown]
  - Medication overuse headache [Unknown]
  - Product use in unapproved indication [Unknown]
  - Product administration error [Unknown]
  - Product administered to patient of inappropriate age [Unknown]
